FAERS Safety Report 9321878 (Version 1)
Quarter: 2013Q2

REPORT INFORMATION
  Report Type: Spontaneous
  Country: US (occurrence: None)
  Receive Date: 20130530
  Receipt Date: 20130530
  Transmission Date: 20140414
  Serious: Yes (Other)
  Sender: FDA-Public Use
  Company Number: None

PATIENT
  Age: 69 Year
  Sex: Female

DRUGS (1)
  1. PROLIA [Suspect]
     Dosage: 60 MG Q 6 MOS SC
     Route: 058
     Dates: start: 201210, end: 20130523

REACTIONS (7)
  - Dyspnoea [None]
  - Muscle spasms [None]
  - Hypoaesthesia [None]
  - Rash [None]
  - Skin infection [None]
  - Back pain [None]
  - Dysphagia [None]
